FAERS Safety Report 18012023 (Version 1)
Quarter: 2020Q3

REPORT INFORMATION
  Report Type: Spontaneous
  Country: RO (occurrence: RO)
  Receive Date: 20200713
  Receipt Date: 20200713
  Transmission Date: 20201103
  Serious: Yes (Hospitalization, Other)
  Sender: FDA-Public Use
  Company Number: RO-SA-2020SA173047

PATIENT

DRUGS (1)
  1. CLEXANE [Suspect]
     Active Substance: ENOXAPARIN SODIUM
     Indication: HYPERCOAGULATION
     Dosage: 0.8 ML

REACTIONS (16)
  - Pre-eclampsia [Recovered/Resolved]
  - Visual impairment [Recovered/Resolved]
  - Disorientation [Recovered/Resolved]
  - Exposure during pregnancy [Recovered/Resolved]
  - Posterior reversible encephalopathy syndrome [Recovered/Resolved]
  - Central nervous system lesion [Recovered/Resolved]
  - Eclampsia [Recovered/Resolved]
  - Blood pressure increased [Recovered/Resolved]
  - Headache [Recovered/Resolved]
  - Anaemia [Unknown]
  - Generalised tonic-clonic seizure [Recovered/Resolved]
  - Psychomotor hyperactivity [Recovered/Resolved]
  - Peripheral swelling [Recovered/Resolved]
  - Petit mal epilepsy [Recovered/Resolved]
  - Behaviour disorder [Recovered/Resolved]
  - Prosopagnosia [Recovered/Resolved]
